FAERS Safety Report 8993110 (Version 1)
Quarter: 2013Q1

REPORT INFORMATION
  Report Type: Spontaneous
  Country: ES (occurrence: ES)
  Receive Date: 20130102
  Receipt Date: 20130102
  Transmission Date: 20140127
  Serious: Yes (Death)
  Sender: FDA-Public Use
  Company Number: ES-ROCHE-1175736

PATIENT
  Age: 28 Year
  Sex: Male

DRUGS (1)
  1. ACTILYSE [Suspect]
     Indication: PULMONARY EMBOLISM
     Dosage: FIRST 50 MG BOLUS ADMINISTERED DURING 2-3 MINUTES, SECOND 50 MG BOLUS AFTER 30 MINUTES DURING 5 MINU
     Route: 065

REACTIONS (1)
  - Shock [Fatal]
